FAERS Safety Report 5023287-3 (Version None)
Quarter: 2006Q2

REPORT INFORMATION
  Report Type: 
  Country: None (occurrence: None)
  Receive Date: 20060605
  Receipt Date: 20060517
  Transmission Date: 20061013
  Serious: Yes (Other)
  Sender: FDA-Public Use
  Company Number: PAR_0641_2006

PATIENT
  Sex: Male

DRUGS (1)
  1. IBUPROFEN [Suspect]
     Dosage: 51 MG/KG PO
     Route: 048

REACTIONS (2)
  - OVERDOSE [None]
  - PANCREATITIS ACUTE [None]
